FAERS Safety Report 5290801-2 (Version None)
Quarter: 2007Q2

REPORT INFORMATION
  Report Type: 
  Country: None (occurrence: None)
  Receive Date: 20070409
  Receipt Date: 20070312
  Transmission Date: 20071010
  Serious: Yes (Other)
  Sender: FDA-Public Use
  Company Number: US-PFIZER INC-2007019332

PATIENT
  Sex: Female
  Weight: 131.1 kg

DRUGS (3)
  1. BEXTRA [Suspect]
     Indication: ARTHRITIS
     Route: 048
  2. BEXTRA [Suspect]
     Indication: PAIN
  3. VIOXX [Suspect]
     Dates: end: 20040919

REACTIONS (1)
  - STEVENS-JOHNSON SYNDROME [None]
